FAERS Safety Report 6847893-6 (Version None)
Quarter: 2010Q3

REPORT INFORMATION
  Report Type: 
  Country: None (occurrence: None)
  Receive Date: 20100716
  Receipt Date: 20100702
  Transmission Date: 20110219
  Serious: Yes (Life-Threatening)
  Sender: FDA-Public Use
  Company Number: US-BAUSCH-2010BL002588

PATIENT
  Age: 40 Year
  Sex: Female
  Weight: 78 kg

DRUGS (4)
  1. LOTEMAX [Suspect]
     Indication: CONJUNCTIVITIS ALLERGIC
     Route: 047
     Dates: start: 20100514, end: 20100514
  2. MULTI-VITAMINS [Concomitant]
  3. GLUCOPHAGE [Concomitant]
     Indication: OVARIAN CYST
     Route: 048
  4. ADVIL LIQUI-GELS [Concomitant]
     Route: 048

REACTIONS (1)
  - HYPERSENSITIVITY [None]
